FAERS Safety Report 8289975-0 (Version None)
Quarter: 2012Q2

REPORT INFORMATION
  Report Type: 
  Country: None (occurrence: None)
  Receive Date: 20120417
  Receipt Date: 20120306
  Transmission Date: 20120825
  Serious: Yes (Hospitalization)
  Sender: FDA-Public Use
  Company Number: GB-ROCHE-1055936

PATIENT
  Sex: Female
  Weight: 76.7 kg

DRUGS (11)
  1. FOLIC ACID [Concomitant]
     Route: 048
     Dates: start: 20100501
  2. FEMOSTON CONTI [Concomitant]
     Route: 048
     Dates: start: 20100501
  3. MABTHERA [Suspect]
     Indication: RHEUMATOID ARTHRITIS
     Route: 042
     Dates: start: 20111229, end: 20111229
  4. CITALOPRAM [Concomitant]
     Route: 048
     Dates: start: 20110801
  5. METHOTREXATE [Concomitant]
     Dosage: 15 UNITS NOT PROVIDED
     Route: 058
     Dates: start: 20100518, end: 20120302
  6. METOCLOPRAMIDE [Concomitant]
     Dates: start: 20100501
  7. LANSOPRAZOLE [Concomitant]
     Route: 048
     Dates: start: 20100501
  8. FERROUS SULFATE TAB [Concomitant]
     Route: 048
     Dates: start: 20100501
  9. SENNA [Concomitant]
     Route: 048
     Dates: start: 20100501
  10. NAPROXEN [Concomitant]
     Route: 048
     Dates: start: 20100501
  11. ACETAMINOPHEN AND CODEINE PHOSPHATE [Concomitant]
     Route: 048
     Dates: start: 20100101

REACTIONS (2)
  - PNEUMONITIS [None]
  - BLOOD GASES ABNORMAL [None]
